FAERS Safety Report 7074311-8 (Version None)
Quarter: 2010Q4

REPORT INFORMATION
  Report Type: 
  Country: None (occurrence: None)
  Receive Date: 20101029
  Receipt Date: 20101020
  Transmission Date: 20110411
  Serious: Yes (Hospitalization)
  Sender: FDA-Public Use
  Company Number: CH-ASTRAZENECA-2010SE50230

PATIENT
  Age: 70 Year
  Sex: Male

DRUGS (12)
  1. ZOLADEX [Suspect]
     Indication: PROSTATE CANCER
     Route: 058
     Dates: end: 20090301
  2. TAXOTERE [Suspect]
     Indication: PROSTATE CANCER
     Route: 042
     Dates: start: 20081216, end: 20090310
  3. PREDNISONE [Suspect]
     Indication: PROSTATE CANCER
     Route: 065
     Dates: start: 20081216, end: 20090310
  4. PREDNISOLON [Suspect]
     Route: 048
  5. ZOMETA [Suspect]
     Indication: PROSTATE CANCER
     Route: 042
     Dates: start: 20081216, end: 20090317
  6. METOHEXAL [Concomitant]
     Route: 048
  7. CALCIUM+D3 [Concomitant]
     Route: 048
  8. MORPHIN [Concomitant]
     Route: 048
  9. DIGOXIN [Concomitant]
     Route: 048
     Dates: start: 20090301, end: 20090301
  10. OMEPRAZOLE [Concomitant]
     Route: 048
  11. METOCLOPRAMIDE [Concomitant]
     Dosage: AS NECESSARY
     Route: 048
     Dates: end: 20090301
  12. MACROGOL [Concomitant]
     Route: 048

REACTIONS (6)
  - ANAEMIA [None]
  - ARRHYTHMIA [None]
  - CHOLESTATIC LIVER INJURY [None]
  - JAUNDICE CHOLESTATIC [None]
  - NEUTROPENIA [None]
  - SEPSIS [None]
